FAERS Safety Report 19112617 (Version 1)
Quarter: 2021Q2

REPORT INFORMATION
  Report Type: Spontaneous
  Country: US (occurrence: US)
  Receive Date: 20210409
  Receipt Date: 20210409
  Transmission Date: 20210717
  Serious: No
  Sender: FDA-Public Use
  Company Number: US-ALLERGAN-2034588US

PATIENT
  Sex: Female

DRUGS (1)
  1. LILETTA [Suspect]
     Active Substance: LEVONORGESTREL
     Indication: PRODUCT USED FOR UNKNOWN INDICATION
     Dosage: 52 MG, SINGLE
     Route: 015
     Dates: start: 20200617, end: 20200617

REACTIONS (6)
  - Abdominal pain [Unknown]
  - Menstruation irregular [Unknown]
  - Ovarian cyst [Unknown]
  - Adnexa uteri pain [Unknown]
  - Dyspareunia [Unknown]
  - Abdominal distension [Unknown]
